FAERS Safety Report 16804161 (Version 1)
Quarter: 2019Q3

REPORT INFORMATION
  Report Type: Spontaneous
  Country: US (occurrence: US)
  Receive Date: 20190913
  Receipt Date: 20190913
  Transmission Date: 20191005
  Serious: No
  Sender: FDA-Public Use
  Company Number: US-TEVA-2019-US-1105058

PATIENT
  Sex: Male

DRUGS (1)
  1. AUSTEDO [Suspect]
     Active Substance: DEUTETRABENAZINE
     Indication: TORTICOLLIS
     Dosage: 45 MILLIGRAM DAILY; THREE 9 MG TABLETS IN THE MORNING AND TWO 9 MG TABLETS AT NIGHT
     Route: 048

REACTIONS (1)
  - Drug ineffective for unapproved indication [Unknown]
